FAERS Safety Report 19815572 (Version 2)
Quarter: 2021Q3

REPORT INFORMATION
  Report Type: Report from Study
  Country: IT (occurrence: IT)
  Receive Date: 20210909
  Receipt Date: 20210916
  Transmission Date: 20211014
  Serious: Yes (Hospitalization)
  Sender: FDA-Public Use
  Company Number: IT-EISAI MEDICAL RESEARCH-EC-2021-099162

PATIENT
  Age: 68 Year
  Sex: Female
  Weight: 52 kg

DRUGS (9)
  1. LOPERAMIDE [Concomitant]
     Active Substance: LOPERAMIDE
     Dates: start: 20210412
  2. LENVATINIB [Suspect]
     Active Substance: LENVATINIB
     Indication: METASTATIC SQUAMOUS CELL CARCINOMA
     Dosage: STARTING DOSE AT 20 MILLIGRAM, FLUCTUATED DOSAGE.
     Route: 048
     Dates: start: 20200817, end: 20210612
  3. LENVATINIB [Suspect]
     Active Substance: LENVATINIB
     Route: 048
     Dates: start: 20210613, end: 20210613
  4. PEMBROLIZUMAB. [Suspect]
     Active Substance: PEMBROLIZUMAB
     Indication: METASTATIC SQUAMOUS CELL CARCINOMA
     Route: 041
     Dates: start: 20200817, end: 20210503
  5. PEMBROLIZUMAB. [Suspect]
     Active Substance: PEMBROLIZUMAB
     Route: 041
     Dates: start: 20210524, end: 20210524
  6. TYROSINE [Concomitant]
     Active Substance: TYROSINE
     Dates: start: 20201117
  7. DIUREMID SR [Concomitant]
     Dates: start: 20201117
  8. NORVASC [Concomitant]
     Active Substance: AMLODIPINE BESYLATE
     Dates: start: 20201117
  9. OMEGA?3 MARINE TRIGLYCERIDES [Concomitant]
     Active Substance: OMEGA-3-ACID ETHYL ESTERS
     Dates: start: 20200322

REACTIONS (1)
  - Cerebral ischaemia [Not Recovered/Not Resolved]

NARRATIVE: CASE EVENT DATE: 20210829
